FAERS Safety Report 18015512 (Version 1)
Quarter: 2020Q3

REPORT INFORMATION
  Report Type: Other
  Country: NL (occurrence: NL)
  Receive Date: 20200713
  Receipt Date: 20200713
  Transmission Date: 20201103
  Serious: Yes (Hospitalization)
  Sender: FDA-Public Use
  Company Number: NL-ALSI-202000239

PATIENT
  Age: 22 Year
  Sex: Male

DRUGS (1)
  1. NITROUS OXIDE. [Suspect]
     Active Substance: NITROUS OXIDE
     Indication: DRUG ABUSE
     Route: 055

REACTIONS (2)
  - Frostbite [Unknown]
  - Drug abuse [Unknown]
